FAERS Safety Report 5787718-3 (Version None)
Quarter: 2008Q2

REPORT INFORMATION
  Report Type: 
  Country: None (occurrence: None)
  Receive Date: 20080625
  Receipt Date: 20071105
  Transmission Date: 20081010
  Serious: No
  Sender: FDA-Public Use
  Company Number: US-ASTRAZENECA-2007UW25667

PATIENT
  Age: 84 Year
  Sex: Female
  Weight: 66.2 kg

DRUGS (1)
  1. PULMICORT FLEXHALER [Suspect]
     Indication: ASTHMA
     Dosage: TWO PUFFS
     Route: 055
     Dates: start: 20071101

REACTIONS (1)
  - RHINORRHOEA [None]
